FAERS Safety Report 12938477 (Version 1)
Quarter: 2016Q4

REPORT INFORMATION
  Report Type: Spontaneous
  Country: US (occurrence: US)
  Receive Date: 20161114
  Receipt Date: 20161114
  Transmission Date: 20170207
  Serious: No
  Sender: FDA-Public Use
  Company Number: US-ACADIA PHARMACEUTICALS INC.-ACA-2016-000368

PATIENT
  Age: 92 Year
  Sex: Male
  Weight: 88.44 kg

DRUGS (1)
  1. NUPLAZID [Suspect]
     Active Substance: PIMAVANSERIN TARTRATE
     Indication: PRODUCT USED FOR UNKNOWN INDICATION
     Dosage: 34 MG, QD
     Route: 048
     Dates: start: 201608, end: 20160809

REACTIONS (3)
  - Sedation [Unknown]
  - Catatonia [Unknown]
  - Aphasia [Unknown]

NARRATIVE: CASE EVENT DATE: 201608
